FAERS Safety Report 4978627-8 (Version None)
Quarter: 2006Q2

REPORT INFORMATION
  Report Type: 
  Country: None (occurrence: None)
  Receive Date: 20060420
  Receipt Date: 20050114
  Transmission Date: 20061013
  Serious: Yes (Hospitalization)
  Sender: FDA-Public Use
  Company Number: US-MERCK-0501USA02141

PATIENT
  Age: 44 Year
  Sex: Male
  Weight: 105 kg

DRUGS (8)
  1. VIOXX [Suspect]
     Indication: BACK PAIN
     Route: 048
     Dates: start: 20000330, end: 20040501
  2. VIOXX [Suspect]
     Indication: PAIN IN EXTREMITY
     Route: 048
     Dates: start: 20000330, end: 20040501
  3. TESTODERM [Concomitant]
     Indication: HORMONE REPLACEMENT THERAPY
     Route: 065
     Dates: start: 20011114, end: 20011211
  4. DEPTRAN (DOXEPIN HYDROCHLORIDE) [Concomitant]
     Indication: DEPRESSION
     Route: 065
     Dates: start: 19991203, end: 20010323
  5. PROZAC [Concomitant]
     Indication: DEPRESSION
     Route: 065
     Dates: start: 19990928, end: 20050406
  6. KLONOPIN [Concomitant]
     Indication: ANXIETY DISORDER
     Route: 065
     Dates: start: 20010323, end: 20010715
  7. METHADONE HCL [Concomitant]
     Indication: PAIN
     Route: 065
     Dates: start: 19990805
  8. NEURONTIN [Concomitant]
     Indication: PAIN
     Route: 065
     Dates: start: 20000414, end: 20040415

REACTIONS (3)
  - BLOOD CHOLESTEROL INCREASED [None]
  - MYOCARDIAL INFARCTION [None]
  - POLYTRAUMATISM [None]
